FAERS Safety Report 22288917 (Version 1)
Quarter: 2023Q2

REPORT INFORMATION
  Report Type: Spontaneous
  Country: CN (occurrence: CN)
  Receive Date: 20230505
  Receipt Date: 20230505
  Transmission Date: 20230722
  Serious: Yes (Hospitalization, Other)
  Sender: FDA-Public Use
  Company Number: CN-PFIZER INC-PV202300078116

PATIENT
  Age: 50 Year
  Sex: Male
  Weight: 70 kg

DRUGS (2)
  1. VFEND [Suspect]
     Active Substance: VORICONAZOLE
     Indication: Antifungal prophylaxis
     Dosage: 200 MG, 2X/DAY
     Route: 041
     Dates: start: 20230327, end: 20230328
  2. VFEND [Suspect]
     Active Substance: VORICONAZOLE
     Dosage: 400 MG, 1X/DAY
     Route: 041
     Dates: start: 20230327, end: 20230327

REACTIONS (3)
  - Hallucination, visual [Recovering/Resolving]
  - Nerve injury [Recovering/Resolving]
  - Initial insomnia [Unknown]

NARRATIVE: CASE EVENT DATE: 20230328
